FAERS Safety Report 5778385-3 (Version None)
Quarter: 2008Q2

REPORT INFORMATION
  Report Type: 
  Country: None (occurrence: None)
  Receive Date: 20080619
  Receipt Date: 20080612
  Transmission Date: 20081010
  Serious: Yes (Other)
  Sender: FDA-Public Use
  Company Number: JP-BAYER-200810544BYL

PATIENT
  Age: 87 Year
  Sex: Female
  Weight: 34 kg

DRUGS (1)
  1. CIPROXAN-I.V. [Suspect]
     Indication: PNEUMONIA
     Dosage: TOTAL DAILY DOSE: 600 MG  UNIT DOSE: 300 MG
     Route: 041
     Dates: start: 20080304, end: 20080313

REACTIONS (1)
  - ATRIAL FIBRILLATION [None]
